FAERS Safety Report 9743262 (Version 2)
Quarter: 2015Q3

REPORT INFORMATION
  Report Type: Spontaneous
  Country: US (occurrence: US)
  Receive Date: 20131210
  Receipt Date: 20150805
  Transmission Date: 20151125
  Serious: No
  Sender: FDA-Public Use
  Company Number: US-GILEAD-2009-0025567

PATIENT
  Age: 72 Year
  Sex: Male

DRUGS (11)
  1. LIPITOR [Concomitant]
     Active Substance: ATORVASTATIN CALCIUM
  2. ADVAIR HFA [Concomitant]
     Active Substance: FLUTICASONE PROPIONATE\SALMETEROL XINAFOATE
  3. ALDACTONE [Concomitant]
     Active Substance: SPIRONOLACTONE
  4. TOPROL XL [Concomitant]
     Active Substance: METOPROLOL SUCCINATE
  5. CARDIZEM [Concomitant]
     Active Substance: DILTIAZEM HYDROCHLORIDE
  6. REMODULIN [Concomitant]
     Active Substance: TREPROSTINIL
  7. LETAIRIS [Suspect]
     Active Substance: AMBRISENTAN
     Indication: PULMONARY ARTERIAL HYPERTENSION
     Route: 048
     Dates: start: 20090925, end: 20091026
  8. LANOXIN [Concomitant]
     Active Substance: DIGOXIN
  9. LASIX [Concomitant]
     Active Substance: FUROSEMIDE
  10. SPIRIVA [Concomitant]
     Active Substance: TIOTROPIUM BROMIDE MONOHYDRATE
  11. COUMADIN [Concomitant]
     Active Substance: WARFARIN SODIUM

REACTIONS (1)
  - Peripheral swelling [Recovered/Resolved]

NARRATIVE: CASE EVENT DATE: 200910
